FAERS Safety Report 25745869 (Version 5)
Quarter: 2025Q4

REPORT INFORMATION
  Report Type: Spontaneous
  Country: JP (occurrence: JP)
  Receive Date: 20250901
  Receipt Date: 20251204
  Transmission Date: 20260118
  Serious: Yes (Other)
  Sender: BRISTOL-MYERS SQUIBB COMPANY
  Company Number: JP-BRISTOL-MYERS SQUIBB COMPANY-2025-120321

PATIENT

DRUGS (3)
  1. YERVOY [Suspect]
     Active Substance: IPILIMUMAB
     Indication: Malignant melanoma
     Dosage: THE ADMINISTRATION OF OPDIVO + YERVOY 4 (COURSE) WAS COMPLETED
     Route: 041
  2. OPDIVO [Suspect]
     Active Substance: NIVOLUMAB
     Indication: Malignant melanoma
     Dosage: THE ADMINISTRATION OF OPDIVO + YERVOY 4 (COURSE) WAS COMPLETED
     Route: 041
  3. OPDIVO [Suspect]
     Active Substance: NIVOLUMAB
     Dosage: THE ADMINISTRATION OF OPDIVO AS MONOTHERAPY WAS STARTED
     Route: 041

REACTIONS (2)
  - Liver disorder [Recovering/Resolving]
  - Cytokine release syndrome [Recovering/Resolving]
